FAERS Safety Report 16903487 (Version 2)
Quarter: 2020Q1

REPORT INFORMATION
  Report Type: Spontaneous
  Country: US (occurrence: US)
  Receive Date: 20191010
  Receipt Date: 20200131
  Transmission Date: 20200409
  Serious: No
  Sender: FDA-Public Use
  Company Number: US-PFIZER INC-2019432242

PATIENT
  Age: 56 Year
  Sex: Male
  Weight: 58.5 kg

DRUGS (4)
  1. MUCINEX [Concomitant]
     Active Substance: GUAIFENESIN
     Indication: SEASONAL ALLERGY
     Dosage: UNK, AS NEEDED
  2. VIAGRA [Suspect]
     Active Substance: SILDENAFIL CITRATE
     Dosage: 50 MG, AS NEEDED (CUT 100 MG INTO HALF)
     Dates: start: 201911
  3. VIAGRA [Suspect]
     Active Substance: SILDENAFIL CITRATE
     Indication: ERECTILE DYSFUNCTION
     Dosage: 0.5 DF, UNK (CUTTING THE 100 MG TABLET IN HALF)
     Dates: start: 2010
  4. CLARITIN-D NOS [Concomitant]
     Active Substance: LORATADINE\PSEUDOEPHEDRINE SULFATE
     Indication: SEASONAL ALLERGY
     Dosage: UNK, AS NEEDED

REACTIONS (4)
  - Cyanopsia [Recovered/Resolved]
  - Fatigue [Recovered/Resolved]
  - Therapeutic product effect decreased [Recovered/Resolved]
  - Flatulence [Recovered/Resolved]

NARRATIVE: CASE EVENT DATE: 201607
